FAERS Safety Report 4516611-9 (Version None)
Quarter: 2004Q4

REPORT INFORMATION
  Report Type: 
  Country: None (occurrence: None)
  Receive Date: 20041202
  Receipt Date: 20041013
  Transmission Date: 20050328
  Serious: Yes (Hospitalization)
  Sender: FDA-Public Use
  Company Number: GB-MERCK-0410GBR00144

PATIENT
  Age: 56 Year
  Sex: Male

DRUGS (3)
  1. PERIACTIN [Suspect]
     Route: 048
     Dates: start: 20041013, end: 20041013
  2. ZOPICLONE [Concomitant]
     Route: 065
  3. OLANZAPINE [Concomitant]
     Route: 065

REACTIONS (3)
  - DIZZINESS [None]
  - DYSARTHRIA [None]
  - INTENTIONAL OVERDOSE [None]
